FAERS Safety Report 9265581 (Version 5)
Quarter: 2014Q2

REPORT INFORMATION
  Report Type: Spontaneous
  Country: US (occurrence: US)
  Receive Date: 20130501
  Receipt Date: 20140416
  Transmission Date: 20141212
  Serious: No
  Sender: FDA-Public Use
  Company Number: US-009507513-1304USA015566

PATIENT
  Sex: Male

DRUGS (3)
  1. PROPECIA [Suspect]
     Indication: ALOPECIA
     Dosage: 1 MG, QD
     Route: 048
     Dates: start: 2001, end: 2011
  2. PROPECIA [Suspect]
     Dosage: 1 MG, QD
     Route: 048
     Dates: start: 20060426
  3. FINASTERIDE [Suspect]
     Indication: ALOPECIA
     Dosage: CUT INTO 1/5 PORTIONS
     Route: 048
     Dates: start: 20110210, end: 2011

REACTIONS (37)
  - Anxiety [Unknown]
  - Gout [Unknown]
  - Arthritis [Unknown]
  - Adverse event [Unknown]
  - Sleep apnoea syndrome [Unknown]
  - Gallbladder disorder [Unknown]
  - Breast lump removal [Unknown]
  - Seroma [Unknown]
  - Breast mass [Unknown]
  - Nasal disorder [Unknown]
  - Pharyngeal disorder [Unknown]
  - Oral disorder [Unknown]
  - Ear disorder [Unknown]
  - Generalised anxiety disorder [Unknown]
  - Rhinitis allergic [Unknown]
  - Dysphonia [Unknown]
  - Gastrooesophageal reflux disease [Unknown]
  - Hyperlipidaemia [Unknown]
  - Sleep disorder [Unknown]
  - Drug abuse [Unknown]
  - Blood pressure increased [Unknown]
  - Epididymitis [Unknown]
  - Spermatocele [Unknown]
  - Chest pain [Unknown]
  - Dyspnoea exertional [Unknown]
  - Alcoholism [Unknown]
  - Hypogonadism [Unknown]
  - Pain [Not Recovered/Not Resolved]
  - Treatment noncompliance [Unknown]
  - Myofascial pain syndrome [Unknown]
  - Facet joint syndrome [Unknown]
  - Drug dependence [Not Recovered/Not Resolved]
  - Insomnia [Unknown]
  - Sexual dysfunction [Not Recovered/Not Resolved]
  - Erectile dysfunction [Not Recovered/Not Resolved]
  - Depression [Recovered/Resolved]
  - Gynaecomastia [Unknown]
